FAERS Safety Report 20455693 (Version 1)
Quarter: 2022Q1

REPORT INFORMATION
  Report Type: Spontaneous
  Country: US (occurrence: US)
  Receive Date: 20220210
  Receipt Date: 20220210
  Transmission Date: 20220423
  Serious: Yes (Other)
  Sender: FDA-Public Use
  Company Number: US-MYLANLABS-2022M1011114

PATIENT
  Age: 7 Decade
  Sex: Male

DRUGS (1)
  1. FLUOROURACIL [Suspect]
     Active Substance: FLUOROURACIL
     Indication: Actinic keratosis
     Dosage: UNK
     Route: 061

REACTIONS (3)
  - Keratoacanthoma [Recovering/Resolving]
  - Rash [Recovering/Resolving]
  - Off label use [Unknown]
